FAERS Safety Report 23664209 (Version 1)
Quarter: 2024Q1

REPORT INFORMATION
  Report Type: Spontaneous
  Country: DE (occurrence: DE)
  Receive Date: 20240322
  Receipt Date: 20240322
  Transmission Date: 20240410
  Serious: Yes (Hospitalization, Other)
  Sender: FDA-Public Use
  Company Number: DE-TEVA-VS-3173641

PATIENT
  Age: 50 Year
  Sex: Female

DRUGS (6)
  1. OXAZEPAM [Suspect]
     Active Substance: OXAZEPAM
     Indication: Sedation
     Dosage: INITIALLY 350 MG PER DAY THEN 50 PACKS PER WEEK
     Route: 048
  2. OXAZEPAM [Suspect]
     Active Substance: OXAZEPAM
     Indication: Sedation
     Route: 048
  3. PANTOPRAZOLE [Concomitant]
     Active Substance: PANTOPRAZOLE
     Indication: Product used for unknown indication
     Route: 065
  4. FENTANYL [Concomitant]
     Active Substance: FENTANYL\FENTANYL CITRATE
     Indication: Product used for unknown indication
     Dosage: PLASTERS
     Route: 065
  5. BENZYDAMINE HYDROCHLORIDE [Concomitant]
     Active Substance: BENZYDAMINE HYDROCHLORIDE
     Indication: Product used for unknown indication
     Route: 065
  6. TIZANIDINE [Concomitant]
     Active Substance: TIZANIDINE
     Indication: Product used for unknown indication
     Route: 065

REACTIONS (19)
  - Urinary retention [Unknown]
  - Amnesia [Recovering/Resolving]
  - Drug withdrawal syndrome [Recovering/Resolving]
  - Loss of consciousness [Recovering/Resolving]
  - Gait disturbance [Recovering/Resolving]
  - Memory impairment [Recovering/Resolving]
  - Hypokinesia [Recovering/Resolving]
  - Cognitive disorder [Recovering/Resolving]
  - Head injury [Recovering/Resolving]
  - Dizziness [Not Recovered/Not Resolved]
  - Nausea [Recovering/Resolving]
  - Cardiovascular disorder [Recovering/Resolving]
  - Malaise [Recovering/Resolving]
  - Seizure [Unknown]
  - Constipation [Unknown]
  - Decreased appetite [Unknown]
  - Hypertension [Unknown]
  - Confusional state [Unknown]
  - Drug dependence [Unknown]

NARRATIVE: CASE EVENT DATE: 20231201
